FAERS Safety Report 6143862-2 (Version None)
Quarter: 2009Q2

REPORT INFORMATION
  Report Type: 
  Country: None (occurrence: None)
  Receive Date: 20090403
  Receipt Date: 20090331
  Transmission Date: 20091009
  Serious: Yes (Other)
  Sender: FDA-Public Use
  Company Number: US-GILEAD-2009-0020597

PATIENT
  Sex: Female
  Weight: 86.26 kg

DRUGS (15)
  1. LETAIRIS [Suspect]
     Indication: PULMONARY ARTERIAL HYPERTENSION
     Dates: start: 20090101, end: 20090201
  2. REVATIO [Concomitant]
  3. LOVENOX [Concomitant]
  4. OXYGEN [Concomitant]
  5. EQL ASPIRIN [Concomitant]
  6. ADVAIR HFA [Concomitant]
  7. IPRATROPIUM/SOL ALBUTEROL [Concomitant]
  8. SPIRIVA [Concomitant]
  9. ACTONEL [Concomitant]
  10. METHADONE [Concomitant]
  11. VICODIN [Concomitant]
  12. SKELAXIN [Concomitant]
  13. ALEVE [Concomitant]
  14. CALCIUM 600+ [Concomitant]
  15. CENTRUM [Concomitant]

REACTIONS (2)
  - DYSPNOEA [None]
  - HAEMOPTYSIS [None]
